FAERS Safety Report 15707777 (Version 1)
Quarter: 2018Q4

REPORT INFORMATION
  Report Type: Spontaneous
  Country: US (occurrence: US)
  Receive Date: 20181211
  Receipt Date: 20181211
  Transmission Date: 20190205
  Serious: No
  Sender: FDA-Public Use
  Company Number: US-TRIS PHARMA, INC.-2018TRISPO01263

PATIENT

DRUGS (2)
  1. HYDROCODONE + APAP [Suspect]
     Active Substance: ACETAMINOPHEN\HYDROCODONE BITARTRATE
     Dosage: 1 AND HALF PILLS, QID (FOUR TIMES A DAY)
     Route: 065
  2. HYDROCODONE + APAP [Suspect]
     Active Substance: ACETAMINOPHEN\HYDROCODONE BITARTRATE
     Indication: BACK PAIN
     Dosage: 4 DF, QD
     Route: 065

REACTIONS (4)
  - Condition aggravated [Recovering/Resolving]
  - Drug ineffective [Unknown]
  - Muscle strain [Recovering/Resolving]
  - Withdrawal syndrome [Recovering/Resolving]
